FAERS Safety Report 23178184 (Version 1)
Quarter: 2023Q4

REPORT INFORMATION
  Report Type: Report from Study
  Country: US (occurrence: US)
  Receive Date: 20231113
  Receipt Date: 20231113
  Transmission Date: 20240110
  Serious: No
  Sender: FDA-Public Use
  Company Number: US-BIOVITRUM-2023-US-017879

PATIENT
  Age: 61 Year
  Sex: Male

DRUGS (1)
  1. DOPTELET [Suspect]
     Active Substance: AVATROMBOPAG MALEATE
     Indication: Immune thrombocytopenia
     Dosage: ONCE DAILY
     Route: 048

REACTIONS (3)
  - COVID-19 [Recovering/Resolving]
  - Fatigue [Unknown]
  - Platelet count decreased [Unknown]
